FAERS Safety Report 7689788-4 (Version None)
Quarter: 2011Q3

REPORT INFORMATION
  Report Type: 
  Country: None (occurrence: None)
  Receive Date: 20110818
  Receipt Date: 20110815
  Transmission Date: 20111222
  Serious: Yes (Other)
  Sender: FDA-Public Use
  Company Number: US-BRISTOL-MYERS SQUIBB COMPANY-15971351

PATIENT

DRUGS (2)
  1. ABILIFY [Suspect]
  2. OPIUM ALKALOIDS [Suspect]

REACTIONS (2)
  - HALLUCINATION, VISUAL [None]
  - DRUG SCREEN FALSE POSITIVE [None]
